FAERS Safety Report 20724532 (Version 1)
Quarter: 2022Q2

REPORT INFORMATION
  Report Type: Spontaneous
  Country: US (occurrence: None)
  Receive Date: 20220418
  Receipt Date: 20220418
  Transmission Date: 20220721
  Serious: Yes (Other)
  Sender: FDA-Public Use
  Company Number: None

PATIENT
  Age: 66 Year
  Sex: Female
  Weight: 59.85 kg

DRUGS (1)
  1. BEBTELOVIMAB [Suspect]
     Active Substance: BEBTELOVIMAB
     Dates: start: 20220418, end: 20220418

REACTIONS (4)
  - Feeling hot [None]
  - Flushing [None]
  - Back pain [None]
  - Injection related reaction [None]

NARRATIVE: CASE EVENT DATE: 20220418
